FAERS Safety Report 24110426 (Version 2)
Quarter: 2024Q4

REPORT INFORMATION
  Report Type: Spontaneous
  Country: MA (occurrence: MA)
  Receive Date: 20240718
  Receipt Date: 20241121
  Transmission Date: 20250114
  Serious: Yes (Hospitalization)
  Sender: ROCHE
  Company Number: MA-ROCHE-10000027526

PATIENT
  Age: 38 Year
  Sex: Female

DRUGS (1)
  1. OCREVUS [Suspect]
     Active Substance: OCRELIZUMAB
     Indication: Product used for unknown indication
     Route: 065
     Dates: start: 20240629

REACTIONS (3)
  - Cardiac failure [Unknown]
  - Renal failure [Unknown]
  - Acute pulmonary oedema [Recovered/Resolved]

NARRATIVE: CASE EVENT DATE: 20240630
